FAERS Safety Report 11195471 (Version 1)
Quarter: 2015Q2

REPORT INFORMATION
  Report Type: Spontaneous
  Country: US (occurrence: US)
  Receive Date: 20150617
  Receipt Date: 20150617
  Transmission Date: 20150821
  Serious: Yes (Death)
  Sender: FDA-Public Use
  Company Number: US-ACTAVIS-2015-12183

PATIENT
  Age: 42 Year
  Sex: Female

DRUGS (2)
  1. ETHANOL [Suspect]
     Active Substance: ALCOHOL
     Indication: COMPLETED SUICIDE
     Dosage: UNK
     Route: 065
  2. DIPHENHYDRAMINE (WATSON LABORATORIES) [Suspect]
     Active Substance: DIPHENHYDRAMINE
     Indication: COMPLETED SUICIDE
     Dosage: UNK
     Route: 065

REACTIONS (2)
  - Completed suicide [Fatal]
  - Toxicity to various agents [Fatal]
